FAERS Safety Report 20118871 (Version 9)
Quarter: 2025Q3

REPORT INFORMATION
  Report Type: Report from Study
  Country: US (occurrence: US)
  Receive Date: 20211126
  Receipt Date: 20250929
  Transmission Date: 20251021
  Serious: Yes (Hospitalization, Other)
  Sender: TAKEDA
  Company Number: US-SHIRE-US202006076

PATIENT
  Age: 72 Year
  Sex: Female
  Weight: 92 kg

DRUGS (46)
  1. HUMAN IMMUNOGLOBULIN G [Suspect]
     Active Substance: HUMAN IMMUNOGLOBULIN G
     Indication: Primary immunodeficiency syndrome
     Dosage: 12 GRAM, 1/WEEK
  2. HUMAN IMMUNOGLOBULIN G [Suspect]
     Active Substance: HUMAN IMMUNOGLOBULIN G
     Indication: Immunodeficiency common variable
  3. HUMAN IMMUNOGLOBULIN G [Suspect]
     Active Substance: HUMAN IMMUNOGLOBULIN G
     Dosage: 12 GRAM, 1/WEEK
  4. ACETAMINOPHEN [Concomitant]
     Active Substance: ACETAMINOPHEN
  5. FLOVENT HFA [Concomitant]
     Active Substance: FLUTICASONE PROPIONATE
  6. TRADJENTA [Concomitant]
     Active Substance: LINAGLIPTIN
  7. RYBELSUS [Concomitant]
     Active Substance: SEMAGLUTIDE
  8. CYPROHEPTADINE [Concomitant]
     Active Substance: CYPROHEPTADINE
  9. CYCLOBENZAPRINE [Concomitant]
     Active Substance: CYCLOBENZAPRINE
  10. SINGULAIR [Concomitant]
     Active Substance: MONTELUKAST SODIUM
  11. BYSTOLIC [Concomitant]
     Active Substance: NEBIVOLOL HYDROCHLORIDE
  12. FIORICET [Concomitant]
     Active Substance: ACETAMINOPHEN\BUTALBITAL\CAFFEINE
  13. BREO ELLIPTA [Concomitant]
     Active Substance: FLUTICASONE FUROATE\VILANTEROL TRIFENATATE
  14. LIVALO [Concomitant]
     Active Substance: PITAVASTATIN CALCIUM
  15. UROCIT-K [Concomitant]
     Active Substance: POTASSIUM CITRATE
  16. WELCHOL [Concomitant]
     Active Substance: COLESEVELAM HYDROCHLORIDE
  17. PROTONIX [Concomitant]
     Active Substance: PANTOPRAZOLE SODIUM
  18. NUCALA [Concomitant]
     Active Substance: MEPOLIZUMAB
  19. LASIX [Concomitant]
     Active Substance: FUROSEMIDE
  20. BREZTRI [Concomitant]
     Active Substance: BUDESONIDE\FORMOTEROL\GLYCOPYRROLATE
  21. MAGNESIUM OXIDE [Concomitant]
     Active Substance: MAGNESIUM OXIDE
  22. SELENIUM [Concomitant]
     Active Substance: SELENIUM
  23. RANEXA [Concomitant]
     Active Substance: RANOLAZINE
  24. CALCIUM\VITAMIN D [Concomitant]
     Active Substance: CALCIUM\VITAMIN D
  25. LOSARTAN POTASSIUM [Concomitant]
     Active Substance: LOSARTAN POTASSIUM
  26. VITAMIN E [Concomitant]
     Active Substance: .ALPHA.-TOCOPHEROL
  27. NITROGLYCERIN [Concomitant]
     Active Substance: NITROGLYCERIN
  28. LEVALBUTEROL TARTRATE [Concomitant]
     Active Substance: LEVALBUTEROL TARTRATE
  29. FIBER THERAPY (CALCIUM POLYCARBOPHIL) [Concomitant]
     Active Substance: CALCIUM POLYCARBOPHIL
  30. ISOSORBIDE MONONITRATE [Concomitant]
     Active Substance: ISOSORBIDE MONONITRATE
  31. LUTEIN [Concomitant]
     Active Substance: LUTEIN
  32. METFORMIN [Concomitant]
     Active Substance: METFORMIN HYDROCHLORIDE
  33. Omega [Concomitant]
  34. WHEY [Concomitant]
     Active Substance: WHEY
  35. COLLAGENASE [Concomitant]
     Active Substance: COLLAGENASE CLOSTRIDIUM HISTOLYTICUM
  36. SACCHAROMYCES CEREVISIAE [Concomitant]
     Active Substance: SACCHAROMYCES CEREVISIAE
  37. Lmx [Concomitant]
  38. DIPHENHYDRAMINE HYDROCHLORIDE [Concomitant]
     Active Substance: DIPHENHYDRAMINE HYDROCHLORIDE
  39. TYLENOL [Concomitant]
     Active Substance: ACETAMINOPHEN
  40. VOLTAREN [Concomitant]
     Active Substance: DICLOFENAC SODIUM
  41. XOPENEX HFA [Concomitant]
     Active Substance: LEVALBUTEROL TARTRATE
  42. CETIRIZINE HCL [Concomitant]
     Active Substance: CETIRIZINE HYDROCHLORIDE
  43. LEVOTHYROXINE SODIUM [Concomitant]
     Active Substance: LEVOTHYROXINE SODIUM
  44. ASPIRIN [Concomitant]
     Active Substance: ASPIRIN
  45. PLAVIX [Concomitant]
     Active Substance: CLOPIDOGREL BISULFATE
  46. VITAMIN B COMPLEX [Concomitant]
     Active Substance: CYANOCOBALAMIN\DEXPANTHENOL\NIACINAMIDE\PYRIDOXINE HYDROCHLORIDE\RIBOFLAVIN 5^-PHOSPHATE SODIUM\THIA

REACTIONS (15)
  - Respiratory tract infection [Unknown]
  - Malignant melanoma [Unknown]
  - Chest pain [Unknown]
  - Viral infection [Unknown]
  - Asthma [Unknown]
  - Musculoskeletal discomfort [Unknown]
  - Eye disorder [Unknown]
  - Osteoporosis [Unknown]
  - Injection site scar [Unknown]
  - Scar [Unknown]
  - Incorrect product administration duration [Unknown]
  - Migraine [Unknown]
  - COVID-19 [Unknown]
  - Blood sodium decreased [Unknown]
  - Sinusitis [Recovered/Resolved]

NARRATIVE: CASE EVENT DATE: 20220420
